FAERS Safety Report 19003670 (Version 1)
Quarter: 2021Q1

REPORT INFORMATION
  Report Type: Spontaneous
  Country: SA (occurrence: SA)
  Receive Date: 20210312
  Receipt Date: 20210312
  Transmission Date: 20210420
  Serious: Yes (Death)
  Sender: FDA-Public Use
  Company Number: SA-ASTRAZENECA-2021A127133

PATIENT
  Age: 47 Year
  Sex: Male
  Weight: 66 kg

DRUGS (3)
  1. BRILINTA [Suspect]
     Active Substance: TICAGRELOR
     Indication: ACUTE CORONARY SYNDROME
     Dosage: 180MG LOADING DOSE THEN THE 90MG DOSE
     Route: 048
     Dates: start: 20210222
  2. ASPIRIN. [Concomitant]
     Active Substance: ASPIRIN
     Dosage: ASPIRIN LOADING DOSE
  3. HEPARIN [Concomitant]
     Active Substance: HEPARIN SODIUM
     Dosage: 4000?UNIT LOADING DOSE THEN 900?UNIT MAINTENANCE DOSE

REACTIONS (1)
  - Cerebral haemorrhage [Fatal]
